FAERS Safety Report 4797440-8 (Version None)
Quarter: 2005Q4

REPORT INFORMATION
  Report Type: 
  Country: None (occurrence: None)
  Receive Date: 20051007
  Receipt Date: 20051007
  Transmission Date: 20060501
  Serious: Yes (Death)
  Sender: FDA-Public Use
  Company Number: None

PATIENT
  Age: 17 Year
  Sex: Male
  Weight: 2.7805 kg

DRUGS (5)
  1. STRATTERA [Suspect]
     Dosage: 1PILL DAILY PO
     Route: 048
     Dates: start: 20041015, end: 20050511
  2. LITHIUM [Concomitant]
  3. TRILEPTAL [Concomitant]
  4. RANITIDINE [Concomitant]
  5. ALPRAZOLAM [Concomitant]

REACTIONS (1)
  - COMPLETED SUICIDE [None]
